FAERS Safety Report 7381830-3 (Version None)
Quarter: 2011Q1

REPORT INFORMATION
  Report Type: 
  Country: None (occurrence: None)
  Receive Date: 20110329
  Receipt Date: 20110325
  Transmission Date: 20110831
  Serious: Yes (Other)
  Sender: FDA-Public Use
  Company Number: BR-ABBOTT-11P-020-0714542-00

PATIENT
  Sex: Female
  Weight: 70 kg

DRUGS (2)
  1. CAPTOPRIL [Concomitant]
     Indication: PRODUCT USED FOR UNKNOWN INDICATION
     Dates: end: 20110301
  2. HUMIRA [Suspect]
     Indication: RHEUMATOID ARTHRITIS
     Route: 058
     Dates: start: 20091101, end: 20110201

REACTIONS (7)
  - DECREASED APPETITE [None]
  - ASTHENIA [None]
  - ABASIA [None]
  - ERYTHEMA [None]
  - OSTEOARTHRITIS [None]
  - BLOOD PRESSURE DECREASED [None]
  - JOINT LOCK [None]
